FAERS Safety Report 8855921 (Version 1)
Quarter: 2012Q4

REPORT INFORMATION
  Report Type: Spontaneous
  Country: US (occurrence: None)
  Receive Date: 20121022
  Receipt Date: 20121022
  Transmission Date: 20130627
  Serious: Yes (Hospitalization, Other)
  Sender: FDA-Public Use
  Company Number: None

PATIENT
  Sex: Male
  Weight: 115.6 kg

DRUGS (4)
  1. NULOJIX [Suspect]
     Indication: KIDNEY TRANSPLANT
     Dosage: every 4 weeks
     Route: 042
     Dates: end: 20121017
  2. CELLCEPT [Suspect]
     Indication: KIDNEY TRANSPLANT
     Dates: start: 20120731
  3. ALEMTUZUMAB [Concomitant]
  4. SOLUMEDROL [Concomitant]

REACTIONS (2)
  - Transplant rejection [None]
  - Kidney transplant rejection [None]
